FAERS Safety Report 4338638-2 (Version None)
Quarter: 2004Q2

REPORT INFORMATION
  Report Type: 
  Country: None (occurrence: None)
  Receive Date: 20040409
  Receipt Date: 20040329
  Transmission Date: 20050107
  Serious: Yes (Other)
  Sender: FDA-Public Use
  Company Number: US-JNJFOC-20040306748

PATIENT
  Sex: Female

DRUGS (1)
  1. DURAGESIC [Suspect]
     Indication: DRUG USE FOR UNKNOWN INDICATION
     Dosage: TRANSDERMAL
     Route: 062

REACTIONS (3)
  - CIRCULATORY COLLAPSE [None]
  - HYPOGLYCAEMIA [None]
  - LOSS OF CONSCIOUSNESS [None]
